FAERS Safety Report 4906188-8 (Version None)
Quarter: 2006Q1

REPORT INFORMATION
  Report Type: 
  Country: None (occurrence: None)
  Receive Date: 20060209
  Receipt Date: 20060131
  Transmission Date: 20060701
  Serious: Yes (Disabling)
  Sender: FDA-Public Use
  Company Number: FR-AVENTIS-200610441FR

PATIENT
  Age: 59 Year
  Sex: Female

DRUGS (2)
  1. BIRODOGYL [Suspect]
     Indication: DENTAL IMPLANTATION
     Route: 048
     Dates: start: 20060109, end: 20060126
  2. BIRODOGYL [Suspect]
     Indication: PROPHYLAXIS
     Route: 048
     Dates: start: 20060109, end: 20060126

REACTIONS (4)
  - FORMICATION [None]
  - HEADACHE [None]
  - PARAESTHESIA [None]
  - VERTIGO [None]
